FAERS Safety Report 15347706 (Version 1)
Quarter: 2018Q3

REPORT INFORMATION
  Report Type: Spontaneous
  Country: US (occurrence: US)
  Receive Date: 20180904
  Receipt Date: 20180904
  Transmission Date: 20181010
  Serious: Yes (Other)
  Sender: FDA-Public Use
  Company Number: US-BRISTOL-MYERS SQUIBB COMPANY-BMS-2018-081646

PATIENT

DRUGS (2)
  1. ELIQUIS [Suspect]
     Active Substance: APIXABAN
     Indication: EMBOLISM VENOUS
     Dosage: UNKNOWN
     Route: 065
  2. ELIQUIS [Suspect]
     Active Substance: APIXABAN
     Indication: FACTOR V DEFICIENCY
     Route: 065

REACTIONS (1)
  - Spinal disorder [Unknown]
